FAERS Safety Report 4495016-3 (Version None)
Quarter: 2004Q4

REPORT INFORMATION
  Report Type: 
  Country: None (occurrence: None)
  Receive Date: 20041103
  Receipt Date: 20041020
  Transmission Date: 20050328
  Serious: Yes (Hospitalization)
  Sender: FDA-Public Use
  Company Number: 206644

PATIENT
  Age: 40 Year
  Sex: Female
  Weight: 79.8331 kg

DRUGS (6)
  1. AVONEX [Suspect]
     Indication: MULTIPLE SCLEROSIS
     Dosage: 30 MCG QW IM
     Route: 030
     Dates: start: 19970101, end: 20030101
  2. AVONEX [Suspect]
     Indication: MULTIPLE SCLEROSIS
     Dosage: 30 MCG QW IM
     Route: 030
     Dates: start: 20030101
  3. CELEXA [Concomitant]
  4. EFFEXOR [Concomitant]
  5. KLONOPIN [Concomitant]
  6. LODINE [Concomitant]

REACTIONS (14)
  - ABDOMINAL PAIN [None]
  - ANGINA PECTORIS [None]
  - ARTHRALGIA [None]
  - CONDITION AGGRAVATED [None]
  - FALL [None]
  - FOOT FRACTURE [None]
  - HEADACHE [None]
  - HYPERTENSION [None]
  - HYPOTHYROIDISM [None]
  - LIGAMENT INJURY [None]
  - MULTIPLE SCLEROSIS [None]
  - STRESS SYMPTOMS [None]
  - VAGINAL HAEMORRHAGE [None]
  - VISUAL DISTURBANCE [None]
